FAERS Safety Report 16421143 (Version 5)
Quarter: 2019Q3

REPORT INFORMATION
  Report Type: Report from Study
  Country: US (occurrence: US)
  Receive Date: 20190612
  Receipt Date: 20190723
  Transmission Date: 20191004
  Serious: Yes (Hospitalization)
  Sender: FDA-Public Use
  Company Number: US-ACTELION-A-US2019-189086

PATIENT
  Sex: Female
  Weight: 59.41 kg

DRUGS (7)
  1. REMODULIN [Suspect]
     Active Substance: TREPROSTINIL
     Dosage: 39 NG/KG, PER MIN
     Route: 065
  2. ORENITRAM [Suspect]
     Active Substance: TREPROSTINIL
     Indication: PRODUCT USED FOR UNKNOWN INDICATION
     Dosage: 0.125 MG
     Route: 065
  3. TADALAFIL. [Concomitant]
     Active Substance: TADALAFIL
  4. LETAIRIS [Concomitant]
     Active Substance: AMBRISENTAN
  5. OPSUMIT [Suspect]
     Active Substance: MACITENTAN
     Indication: PULMONARY ARTERIAL HYPERTENSION
     Dosage: 10 MG, QD
     Route: 048
  6. REMODULIN [Suspect]
     Active Substance: TREPROSTINIL
     Indication: PRODUCT USED FOR UNKNOWN INDICATION
     Dosage: 37 NG/KG, PER MIN
     Route: 042
  7. REMODULIN [Suspect]
     Active Substance: TREPROSTINIL
     Dosage: 38 NG/KG, PER MIN
     Route: 065

REACTIONS (17)
  - Back pain [Unknown]
  - Right ventricular failure [Unknown]
  - Pulmonary arterial hypertension [Unknown]
  - Diarrhoea [Unknown]
  - Catheter site pruritus [Unknown]
  - Pain in jaw [Unknown]
  - Hot flush [Unknown]
  - Insomnia [Unknown]
  - Hypotension [Unknown]
  - Night sweats [Unknown]
  - Cough [Unknown]
  - Headache [Unknown]
  - Catheter site pain [Unknown]
  - Heart rate increased [Recovering/Resolving]
  - Sinus headache [Unknown]
  - Nasal congestion [Unknown]
  - Pain in extremity [Unknown]
